FAERS Safety Report 15493724 (Version 2)
Quarter: 2018Q4

REPORT INFORMATION
  Report Type: Report from Study
  Country: CL (occurrence: CL)
  Receive Date: 20181012
  Receipt Date: 20181213
  Transmission Date: 20190205
  Serious: Yes (Other)
  Sender: FDA-Public Use
  Company Number: CL-BRISTOL-MYERS SQUIBB COMPANY-BMS-2018-093149

PATIENT
  Age: 57 Year
  Sex: Female

DRUGS (1)
  1. NIVOLUMAB [Suspect]
     Active Substance: NIVOLUMAB
     Indication: MALIGNANT MELANOMA
     Dosage: 240 MG, Q2WK
     Route: 042
     Dates: start: 20180524, end: 20180913

REACTIONS (1)
  - Neoplasm malignant [Recovering/Resolving]

NARRATIVE: CASE EVENT DATE: 201808
